FAERS Safety Report 23128002 (Version 2)
Quarter: 2023Q4

REPORT INFORMATION
  Report Type: Report from Study
  Country: IT (occurrence: IT)
  Receive Date: 20231031
  Receipt Date: 20231213
  Transmission Date: 20240110
  Serious: Yes (Other)
  Sender: FDA-Public Use
  Company Number: IT-ABBVIE-5467742

PATIENT
  Age: 74 Year
  Sex: Female

DRUGS (2)
  1. CARBIDOPA\LEVODOPA [Suspect]
     Active Substance: CARBIDOPA\LEVODOPA
     Indication: Parkinson^s disease
     Dosage: TOTAL DAILY DOSE (MG): 910; PUMP SETTING: MD: 6,5+3 CR: 2,2,  ED: 1,9
     Route: 050
     Dates: start: 20160308
  2. CARBIDOPA\LEVODOPA [Suspect]
     Active Substance: CARBIDOPA\LEVODOPA
     Dosage: TOTAL DAILY DOSE (MG): 914; PUMP SETTING: MD: 6,5+3; CR: 2,2;  ED: 2
     Route: 050

REACTIONS (3)
  - Gastrointestinal stoma complication [Unknown]
  - Gastric ulcer [Not Recovered/Not Resolved]
  - Embedded device [Recovering/Resolving]

NARRATIVE: CASE EVENT DATE: 20231025
